FAERS Safety Report 19929930 (Version 12)
Quarter: 2023Q2

REPORT INFORMATION
  Report Type: Spontaneous
  Country: US (occurrence: US)
  Receive Date: 20211007
  Receipt Date: 20230413
  Transmission Date: 20230722
  Serious: Yes (Hospitalization)
  Sender: FDA-Public Use
  Company Number: US-GLAXOSMITHKLINE-US2021AMR207467

PATIENT
  Age: 63 Year
  Sex: Female

DRUGS (2)
  1. ZEJULA [Suspect]
     Active Substance: NIRAPARIB
     Indication: Fallopian tube cancer
     Dosage: 100 MG, QD
     Dates: start: 20210926
  2. ZEJULA [Suspect]
     Active Substance: NIRAPARIB
     Dosage: 200 MG, QD
     Dates: end: 202302

REACTIONS (12)
  - Surgery [Unknown]
  - Nausea [Recovering/Resolving]
  - Malaise [Recovering/Resolving]
  - Oropharyngeal pain [Unknown]
  - Headache [Unknown]
  - Gastrooesophageal reflux disease [Unknown]
  - Diarrhoea [Unknown]
  - Dehydration [Unknown]
  - Lactose intolerance [Unknown]
  - Abdominal pain [Unknown]
  - Coronavirus infection [Unknown]
  - Off label use [Unknown]

NARRATIVE: CASE EVENT DATE: 20220301
